FAERS Safety Report 18288715 (Version 1)
Quarter: 2020Q3

REPORT INFORMATION
  Report Type: Spontaneous
  Country: US (occurrence: US)
  Receive Date: 20200920
  Receipt Date: 20200920
  Transmission Date: 20201103
  Serious: Yes (Life-Threatening)
  Sender: FDA-Public Use
  Company Number: None

PATIENT
  Age: 16 Year
  Sex: Male
  Weight: 51.3 kg

DRUGS (1)
  1. OPDIVO [Suspect]
     Active Substance: NIVOLUMAB
     Indication: RENAL CELL CARCINOMA
     Dosage: ?          OTHER FREQUENCY:EVERY 2 WEEKS;?
     Route: 040
     Dates: start: 20190604, end: 20200403

REACTIONS (11)
  - Acute kidney injury [None]
  - Mental status changes [None]
  - Malnutrition [None]
  - Dehydration [None]
  - Hypercalcaemia [None]
  - Bradycardia [None]
  - Haemorrhage [None]
  - Pulmonary artery thrombosis [None]
  - Arrhythmia [None]
  - Myocarditis [None]
  - Atrioventricular block complete [None]

NARRATIVE: CASE EVENT DATE: 20200427
